FAERS Safety Report 7826053-6 (Version None)
Quarter: 2011Q4

REPORT INFORMATION
  Report Type: 
  Country: None (occurrence: None)
  Receive Date: 20111019
  Receipt Date: 20111012
  Transmission Date: 20120403
  Serious: Yes (Other)
  Sender: FDA-Public Use
  Company Number: CN-ASTRAZENECA-2011SE58603

PATIENT
  Age: 695 Month
  Sex: Male

DRUGS (1)
  1. IRESSA [Suspect]
     Route: 048
     Dates: start: 20110801, end: 20110929

REACTIONS (3)
  - DERMATITIS EXFOLIATIVE [None]
  - PIGMENTATION DISORDER [None]
  - PYREXIA [None]
